FAERS Safety Report 6502804-8 (Version None)
Quarter: 2009Q4

REPORT INFORMATION
  Report Type: 
  Country: None (occurrence: None)
  Receive Date: 20091127
  Receipt Date: 20090917
  Transmission Date: 20100525
  Serious: No
  Sender: FDA-Public Use
  Company Number: 001821

PATIENT
  Age: 21 Year
  Sex: Male

DRUGS (3)
  1. LACOSAMIDE [Suspect]
     Indication: CONVULSION
     Dosage: 100 MG BID ORAL
     Route: 048
  2. KEPPRA [Suspect]
     Indication: CONVULSION
     Dosage: 2000 MG BID ORAL
     Route: 048
  3. LAMOTRIGINE [Suspect]
     Indication: CONVULSION
     Dosage: 400 MG BID ORAL
     Route: 048

REACTIONS (1)
  - DRUG LEVEL DECREASED [None]
